FAERS Safety Report 8786980 (Version 2)
Quarter: 2012Q4

REPORT INFORMATION
  Report Type: 
  Country: US (occurrence: US)
  Receive Date: 20120914
  Receipt Date: 20120914
  Transmission Date: 20130627
  Serious: Yes (Other)
  Sender: FDA-Public Use
  Company Number: PHHY2009US42956

PATIENT
  Age: 39 Year
  Sex: Female

DRUGS (8)
  1. AMANTADINE [Suspect]
     Dosage: 100 mg, BID
     Route: 048
  2. DEPAKOTE [Concomitant]
     Dosage: UNK UKN, UNK
  3. HALDOL [Concomitant]
     Dosage: UNK UKN, UNK
  4. SEROQUEL [Concomitant]
     Dosage: UNK UKN, UNK
  5. LEVOTHYROXINE [Concomitant]
     Dosage: UNK UKN, UNK
  6. WELLBUTRIN [Concomitant]
     Dosage: UNK UKN, UNK
  7. LISINOPRIL [Concomitant]
     Dosage: UNK UKN, UNK
  8. LIDOCAINE [Concomitant]
     Dosage: UNK UKN, UNK

REACTIONS (12)
  - Ocular toxicity [Unknown]
  - Diplopia [Unknown]
  - Corneal oedema [Not Recovered/Not Resolved]
  - Transplant failure [Unknown]
  - Corneal hypertrophy [Unknown]
  - Visual acuity reduced [Recovering/Resolving]
  - Corneal endotheliitis [Unknown]
  - Infection [Unknown]
  - Blindness [Recovering/Resolving]
  - Hallucination, visual [Unknown]
  - Confusional state [Unknown]
  - Tardive dyskinesia [Unknown]
